FAERS Safety Report 13538624 (Version 2)
Quarter: 2017Q2

REPORT INFORMATION
  Report Type: Spontaneous
  Country: KR (occurrence: KR)
  Receive Date: 20170512
  Receipt Date: 20170601
  Transmission Date: 20170830
  Serious: Yes (Other)
  Sender: FDA-Public Use
  Company Number: KR-BAXTER-2017BAX020501

PATIENT
  Age: 62 Year
  Sex: Female
  Weight: 46.3 kg

DRUGS (1)
  1. BICART 720 [Suspect]
     Active Substance: SODIUM BICARBONATE
     Indication: HAEMODIALYSIS
     Dosage: 4HOURS DIALYSIS TREATMENT, SOLUTION CONCENTRATION: 160 TO 163 MEQ/L
     Route: 010
     Dates: start: 201704

REACTIONS (6)
  - Hypernatraemia [Unknown]
  - Incorrect dose administered by device [Unknown]
  - Condition aggravated [Unknown]
  - Blood pressure decreased [Unknown]
  - Tongue disorder [Unknown]
  - Blood pressure increased [Unknown]

NARRATIVE: CASE EVENT DATE: 20170502
